FAERS Safety Report 4434501-7 (Version None)
Quarter: 2004Q3

REPORT INFORMATION
  Report Type: 
  Country: None (occurrence: None)
  Receive Date: 20040726
  Receipt Date: 20040415
  Transmission Date: 20050211
  Serious: No
  Sender: FDA-Public Use
  Company Number: USA040464934

PATIENT
  Age: 60 Year
  Sex: Female
  Weight: 59 kg

DRUGS (5)
  1. FORTEO [Suspect]
     Indication: OSTEOPOROSIS
     Dosage: 20 UG/1 DAY
     Dates: start: 20030201
  2. MAXZIDE [Concomitant]
  3. MULTIVITAMIN [Concomitant]
  4. VIACTIV [Concomitant]
  5. VITAMIN D [Concomitant]

REACTIONS (9)
  - CHILLS [None]
  - DIZZINESS [None]
  - DYSPNOEA [None]
  - HEADACHE [None]
  - HOT FLUSH [None]
  - MYALGIA [None]
  - NAUSEA [None]
  - PALPITATIONS [None]
  - VOMITING [None]
